FAERS Safety Report 21289947 (Version 2)
Quarter: 2022Q3

REPORT INFORMATION
  Report Type: Spontaneous
  Country: IL (occurrence: IL)
  Receive Date: 20220902
  Receipt Date: 20220908
  Transmission Date: 20221027
  Serious: Yes (Other)
  Sender: FDA-Public Use
  Company Number: IL-NOVARTISPH-NVSC2022IL197979

PATIENT
  Age: 71 Year
  Sex: Female

DRUGS (2)
  1. RITALIN LA [Suspect]
     Active Substance: METHYLPHENIDATE HYDROCHLORIDE
     Indication: Attention deficit hyperactivity disorder
     Dosage: 10 MG
     Route: 065
  2. MELATONIN [Concomitant]
     Active Substance: MELATONIN
     Indication: Product used for unknown indication
     Dosage: UNK
     Route: 065

REACTIONS (10)
  - Ataxia [Unknown]
  - Malaise [Unknown]
  - Muscle spasms [Unknown]
  - Asthma [Unknown]
  - Gait disturbance [Unknown]
  - Disturbance in attention [Unknown]
  - Hypertension [Unknown]
  - Headache [Unknown]
  - Heart rate increased [Unknown]
  - Tremor [Unknown]
